FAERS Safety Report 6088669-X (Version None)
Quarter: 2009Q1

REPORT INFORMATION
  Report Type: 
  Country: None (occurrence: None)
  Receive Date: 20090224
  Receipt Date: 20090212
  Transmission Date: 20090719
  Serious: Yes (Life-Threatening, Hospitalization)
  Sender: FDA-Public Use
  Company Number: DK-PFIZER INC-2009169768

PATIENT

DRUGS (3)
  1. SUTENT [Suspect]
     Indication: METASTATIC RENAL CELL CARCINOMA
     Dosage: 50 MG, UNK
     Route: 048
     Dates: start: 20071001, end: 20090119
  2. ZOLADEX [Suspect]
     Indication: PROSTATE CANCER
     Dosage: UNK
     Route: 050
     Dates: start: 20060101
  3. AMLODIPINE [Concomitant]
     Indication: HYPERTENSION

REACTIONS (1)
  - ANGIOEDEMA [None]
